FAERS Safety Report 14634462 (Version 1)
Quarter: 2018Q1

REPORT INFORMATION
  Report Type: Spontaneous
  Country: US (occurrence: US)
  Receive Date: 20180313
  Receipt Date: 20180313
  Transmission Date: 20180509
  Serious: No
  Sender: FDA-Public Use
  Company Number: None

PATIENT
  Age: 59 Year
  Sex: Male

DRUGS (1)
  1. TEMOZOLOMIDE 100MG SANDOZ [Suspect]
     Active Substance: TEMOZOLOMIDE
     Indication: BRAIN NEOPLASM MALIGNANT
     Dosage: DOSE - 100MG (300MG) QD DAYS 1-5 OF EACH 28?FREQUENCY - QD FOR 5 DAYS
     Route: 048
     Dates: start: 20171122

REACTIONS (2)
  - Rash [None]
  - Respiratory disorder [None]

NARRATIVE: CASE EVENT DATE: 20180305
